FAERS Safety Report 6969264-4 (Version None)
Quarter: 2010Q3

REPORT INFORMATION
  Report Type: 
  Country: None (occurrence: None)
  Receive Date: 20100907
  Receipt Date: 20100825
  Transmission Date: 20110219
  Serious: Yes (Hospitalization)
  Sender: FDA-Public Use
  Company Number: DE-ELI_LILLY_AND_COMPANY-DE201005000852

PATIENT
  Sex: Male
  Weight: 103 kg

DRUGS (1)
  1. STRATTERA [Suspect]
     Dosage: 88 MG, UNKNOWN
     Route: 048

REACTIONS (2)
  - PERIPHERAL NERVE INJURY [None]
  - PERIPHERAL VASCULAR DISORDER [None]
